FAERS Safety Report 6408759-9 (Version None)
Quarter: 2009Q4

REPORT INFORMATION
  Report Type: 
  Country: None (occurrence: None)
  Receive Date: 20091021
  Receipt Date: 20091021
  Transmission Date: 20100525
  Serious: Yes (Death)
  Sender: FDA-Public Use
  Company Number: A0807414A

PATIENT
  Age: 80 Year
  Sex: Female

DRUGS (4)
  1. TYKERB [Suspect]
     Indication: BREAST CANCER
     Dosage: 2TAB PER DAY
     Route: 048
     Dates: start: 20090908
  2. VOLTAREN [Concomitant]
  3. CARDURA [Concomitant]
  4. DILTIAZEM [Concomitant]

REACTIONS (4)
  - ABDOMINAL PAIN UPPER [None]
  - DIARRHOEA [None]
  - DISEASE PROGRESSION [None]
  - DIZZINESS [None]
